FAERS Safety Report 9237545 (Version 2)
Quarter: 2013Q2

REPORT INFORMATION
  Report Type: Spontaneous
  Country: BR (occurrence: BR)
  Receive Date: 20130418
  Receipt Date: 20130621
  Transmission Date: 20140414
  Serious: Yes (Other)
  Sender: FDA-Public Use
  Company Number: BR-AMGEN-BRASP2013026367

PATIENT
  Age: 62 Year
  Sex: Female
  Weight: 64 kg

DRUGS (10)
  1. ENBREL [Suspect]
     Indication: ANKYLOSING SPONDYLITIS
     Dosage: 50 MG, WEEKLY
     Dates: start: 20120821
  2. ENBREL [Suspect]
     Dosage: UNK
  3. ENBREL [Suspect]
     Dosage: UNK
  4. SYNTHROID [Concomitant]
     Indication: THYROID DISORDER
     Dosage: 75 MG, 1X/DAY
  5. VALDOXAN [Concomitant]
     Indication: DEPRESSION
     Dosage: 25 MG, 1X/DAY
  6. ZOLOFT [Concomitant]
     Indication: DEPRESSION
     Dosage: 50 MG, TABLET 1X/DAY
  7. LIPITOR [Concomitant]
     Indication: ARTERIOSCLEROSIS
     Dosage: 10 MG, DAILY
  8. LIPITOR [Concomitant]
     Indication: BLOOD CHOLESTEROL ABNORMAL
  9. ESTRADOT [Concomitant]
     Indication: HORMONE THERAPY
     Dosage: 50 MG, WEEKLY
  10. VITAMIN D                          /00107901/ [Concomitant]
     Dosage: 20 DROPS OF AN UNSPECIFIED DOSE, 3X/WEEK

REACTIONS (7)
  - Hypersensitivity [Unknown]
  - Erythema [Unknown]
  - Pruritus [Unknown]
  - Productive cough [Unknown]
  - Urticaria [Unknown]
  - Injection site hypersensitivity [Unknown]
  - Urinary tract infection [Unknown]
